FAERS Safety Report 13653082 (Version 1)
Quarter: 2017Q2

REPORT INFORMATION
  Report Type: Spontaneous
  Country: US (occurrence: US)
  Receive Date: 20170614
  Receipt Date: 20170614
  Transmission Date: 20170830
  Serious: Yes (Other)
  Sender: FDA-Public Use
  Company Number: US-ROCHE-697941

PATIENT
  Age: 82 Year
  Sex: Male
  Weight: 72.8 kg

DRUGS (10)
  1. OMEPRAZOLE. [Concomitant]
     Active Substance: OMEPRAZOLE
     Route: 048
  2. FUROSEMIDE. [Concomitant]
     Active Substance: FUROSEMIDE
     Route: 048
  3. PLAVIX [Concomitant]
     Active Substance: CLOPIDOGREL BISULFATE
     Route: 048
  4. ATENOLOL. [Concomitant]
     Active Substance: ATENOLOL
     Route: 048
  5. POTASSIUM CHLORIDE. [Concomitant]
     Active Substance: POTASSIUM CHLORIDE
     Route: 048
  6. ADVAIR HFA [Concomitant]
     Active Substance: FLUTICASONE PROPIONATE\SALMETEROL XINAFOATE
     Dosage: FORM: INHALER, FREQ: PRN
     Route: 055
  7. ALPRAZOLAM. [Concomitant]
     Active Substance: ALPRAZOLAM
     Dosage: FREQUENCY: DAILY, DOSE: 5/40
     Route: 048
  8. ISOSORBIDE. [Concomitant]
     Active Substance: ISOSORBIDE
     Route: 048
  9. XELODA [Suspect]
     Active Substance: CAPECITABINE
     Indication: COLON CANCER
     Dosage: 1000 MG IN MORNING AND 1500 MG IN THE EVENING
     Route: 048
     Dates: start: 20100210, end: 20100412
  10. OXYCODONE [Concomitant]
     Active Substance: OXYCODONE
     Dosage: DOSE: 5/325 PRN
     Route: 048

REACTIONS (1)
  - Skin ulcer [Not Recovered/Not Resolved]

NARRATIVE: CASE EVENT DATE: 20100412
